FAERS Safety Report 8544616-X (Version None)
Quarter: 2012Q2

REPORT INFORMATION
  Report Type: 
  Country: None (occurrence: None)
  Receive Date: 20120416
  Receipt Date: 20101028
  Transmission Date: 20120825
  Serious: Yes (Other)
  Sender: FDA-Public Use
  Company Number: PHHY2010US73041

PATIENT
  Age: 71 Year
  Sex: Male

DRUGS (4)
  1. ALUREM (ALUREM) [Concomitant]
  2. DIOVAN [Suspect]
     Dosage: 40 MG, 160 MG DAILY
  3. INDAPAMIDE [Concomitant]
  4. UNKNOWN VITAMINS (UNKNOWN VITAMINS) [Concomitant]

REACTIONS (11)
  - BLOOD PRESSURE INCREASED [None]
  - ANXIETY [None]
  - IRRITABILITY [None]
  - DIZZINESS [None]
  - HYPERHIDROSIS [None]
  - BLOOD URIC ACID INCREASED [None]
  - PALPITATIONS [None]
  - FATIGUE [None]
  - ASTHENIA [None]
  - FEELING ABNORMAL [None]
  - HYPERTENSION [None]
